FAERS Safety Report 8110996-2 (Version None)
Quarter: 2012Q1

REPORT INFORMATION
  Report Type: 
  Country: None (occurrence: None)
  Receive Date: 20120203
  Receipt Date: 20110204
  Transmission Date: 20120608
  Serious: No
  Sender: FDA-Public Use
  Company Number: US-GLAXOSMITHKLINE-A0911983A

PATIENT
  Age: 33 Year
  Sex: Female

DRUGS (3)
  1. CONCERTA [Concomitant]
  2. LAMICTAL [Suspect]
     Indication: DEPRESSION
     Dosage: 200MG PER DAY
     Route: 048
     Dates: start: 20100801
  3. PAXIL [Concomitant]

REACTIONS (8)
  - MEMORY IMPAIRMENT [None]
  - DRUG INEFFECTIVE [None]
  - VISION BLURRED [None]
  - THINKING ABNORMAL [None]
  - HEADACHE [None]
  - OROPHARYNGEAL DISCOMFORT [None]
  - BLEPHAROSPASM [None]
  - SLEEP DISORDER [None]
